FAERS Safety Report 10232605 (Version 1)
Quarter: 2014Q2

REPORT INFORMATION
  Report Type: Spontaneous
  Country: US (occurrence: None)
  Receive Date: 20140611
  Receipt Date: 20140611
  Transmission Date: 20141212
  Serious: No
  Sender: FDA-Public Use
  Company Number: None

PATIENT
  Age: 25 Year
  Sex: Female
  Weight: 90.72 kg

DRUGS (1)
  1. PHENTERMINE [Suspect]
     Route: 048

REACTIONS (7)
  - Arthralgia [None]
  - Pain [None]
  - Pain in extremity [None]
  - Arthralgia [None]
  - Back pain [None]
  - Back pain [None]
  - Arthralgia [None]
